FAERS Safety Report 12742529 (Version 1)
Quarter: 2016Q3

REPORT INFORMATION
  Report Type: Spontaneous
  Country: JP (occurrence: JP)
  Receive Date: 20160914
  Receipt Date: 20160914
  Transmission Date: 20161109
  Serious: Yes (Hospitalization, Other)
  Sender: FDA-Public Use
  Company Number: JP-ELI_LILLY_AND_COMPANY-JP201609003912

PATIENT
  Age: 75 Year
  Sex: Male

DRUGS (2)
  1. ERBITUX [Suspect]
     Active Substance: CETUXIMAB
     Indication: MALIGNANT PALATE NEOPLASM
     Dosage: UNK UNK, UNKNOWN
     Route: 042
     Dates: start: 201512
  2. PACLITAXEL. [Suspect]
     Active Substance: PACLITAXEL
     Indication: MALIGNANT PALATE NEOPLASM
     Dosage: UNK UNK, UNKNOWN
     Route: 065
     Dates: start: 201512

REACTIONS (4)
  - Interstitial lung disease [Unknown]
  - Ventricular fibrillation [Unknown]
  - Hypomagnesaemia [Unknown]
  - Off label use [Unknown]
